FAERS Safety Report 6274046-5 (Version None)
Quarter: 2009Q3

REPORT INFORMATION
  Report Type: 
  Country: None (occurrence: None)
  Receive Date: 20090720
  Receipt Date: 20090708
  Transmission Date: 20100115
  Serious: Yes (Hospitalization)
  Sender: FDA-Public Use
  Company Number: BE-ELI_LILLY_AND_COMPANY-BE200907001703

PATIENT
  Age: 50 Year
  Sex: Male

DRUGS (4)
  1. CYMBALTA [Suspect]
  2. SIFROL [Interacting]
  3. AMLOR [Concomitant]
  4. OMEPRAZOLE [Concomitant]

REACTIONS (2)
  - DRUG INTERACTION [None]
  - TACHYCARDIA PAROXYSMAL [None]
